FAERS Safety Report 17726008 (Version 2)
Quarter: 2020Q2

REPORT INFORMATION
  Report Type: Report from Study
  Country: US (occurrence: US)
  Receive Date: 20200429
  Receipt Date: 20200617
  Transmission Date: 20200714
  Serious: Yes (Hospitalization, Other)
  Sender: FDA-Public Use
  Company Number: US-ACTELION-A-US2019-185605

PATIENT
  Sex: Female
  Weight: 89.34 kg

DRUGS (2)
  1. ADEMPAS [Suspect]
     Active Substance: RIOCIGUAT
     Indication: PRODUCT USED FOR UNKNOWN INDICATION
     Dosage: 0.5 MG, TID
     Route: 065
  2. OPSUMIT [Suspect]
     Active Substance: MACITENTAN
     Indication: PULMONARY ARTERIAL HYPERTENSION
     Dosage: 10 MG, QD
     Route: 048

REACTIONS (11)
  - Peripheral swelling [Unknown]
  - Wrist fracture [Unknown]
  - Oedema [Unknown]
  - Pain in extremity [Unknown]
  - Joint injury [Unknown]
  - Bipolar disorder [Unknown]
  - Headache [Unknown]
  - Drug intolerance [Unknown]
  - Hospitalisation [Unknown]
  - Diarrhoea [Unknown]
  - Fall [Unknown]
